FAERS Safety Report 8205883-5 (Version None)
Quarter: 2012Q1

REPORT INFORMATION
  Report Type: 
  Country: None (occurrence: None)
  Receive Date: 20120313
  Receipt Date: 20120305
  Transmission Date: 20120608
  Serious: Yes (Hospitalization, Other)
  Sender: FDA-Public Use
  Company Number: PHHY2012AU019526

PATIENT
  Age: 16 Year
  Sex: Male

DRUGS (4)
  1. FLUOXETINE HCL [Suspect]
     Indication: EMOTIONAL DISTRESS
     Dosage: 20 MG, QD
  2. FLUOXETINE HCL [Interacting]
     Dosage: 60 MG, QD
  3. VALPROATE SODIUM [Interacting]
     Indication: EMOTIONAL DISTRESS
     Dosage: 1000 MG, QD
  4. FLUOXETINE HCL [Interacting]
     Dosage: 40 MG, QD

REACTIONS (7)
  - HOMICIDE [None]
  - DRUG INTERACTION [None]
  - ANXIETY [None]
  - ENERGY INCREASED [None]
  - AGITATION [None]
  - AKATHISIA [None]
  - RESTLESSNESS [None]
